FAERS Safety Report 25123324 (Version 1)
Quarter: 2025Q1

REPORT INFORMATION
  Report Type: Spontaneous
  Country: US (occurrence: US)
  Receive Date: 20250326
  Receipt Date: 20250326
  Transmission Date: 20250409
  Serious: No
  Sender: GRIFOLS
  Company Number: US-IGSA-BIG0031742

PATIENT
  Sex: Female
  Weight: 55.782 kg

DRUGS (20)
  1. PROLASTIN-C LIQUID [Suspect]
     Active Substance: .ALPHA.1-PROTEINASE INHIBITOR HUMAN
     Indication: Alpha-1 antitrypsin deficiency
     Dosage: 3704 MILLIGRAM, Q.WK.
     Route: 042
  2. DIPHENHYDRAMINE HYDROCHLORIDE [Concomitant]
     Active Substance: DIPHENHYDRAMINE HYDROCHLORIDE
  3. EPINEPHRINE [Concomitant]
     Active Substance: EPINEPHRINE
  4. LIDOCAINE 4% MENTHOL 4% [Concomitant]
     Active Substance: LIDOCAINE\MENTHOL
  5. DEXTROSE\SODIUM CHLORIDE [Concomitant]
     Active Substance: DEXTROSE\SODIUM CHLORIDE
  6. IPRATROPIUM BROMIDE [Concomitant]
     Active Substance: IPRATROPIUM BROMIDE
  7. FUROSEMIDE [Concomitant]
     Active Substance: FUROSEMIDE
  8. NORVASC [Concomitant]
     Active Substance: AMLODIPINE BESYLATE
  9. LEVOCETIRIZINE DIHYDROCHLORIDE [Concomitant]
     Active Substance: LEVOCETIRIZINE DIHYDROCHLORIDE
  10. DIAZEPAM [Concomitant]
     Active Substance: DIAZEPAM
  11. TEMAZEPAM [Concomitant]
     Active Substance: TEMAZEPAM
  12. METOPROLOL TARTRATE [Concomitant]
     Active Substance: METOPROLOL TARTRATE
  13. JARDIANCE [Concomitant]
     Active Substance: EMPAGLIFLOZIN
  14. VALSARTAN HYDROCHLOROTHIAZIDE AKRIKHIN [Concomitant]
  15. PROAIR HFA [Concomitant]
     Active Substance: ALBUTEROL SULFATE
  16. ROSUVASTATIN CALCIUM [Concomitant]
     Active Substance: ROSUVASTATIN CALCIUM
  17. VITAMIN D3 [Concomitant]
     Active Substance: CHOLECALCIFEROL
  18. VISION [Concomitant]
  19. OXYGEN [Concomitant]
     Active Substance: OXYGEN
  20. RYBELSUS [Concomitant]
     Active Substance: SEMAGLUTIDE
     Dates: start: 20241114

REACTIONS (1)
  - Infusion site swelling [Recovered/Resolved]
